FAERS Safety Report 12976775 (Version 1)
Quarter: 2016Q4

REPORT INFORMATION
  Report Type: Spontaneous
  Country: US (occurrence: US)
  Receive Date: 20161128
  Receipt Date: 20161128
  Transmission Date: 20170207
  Serious: Yes (Other)
  Sender: FDA-Public Use
  Company Number: PHEH2016US030597

PATIENT
  Age: 79 Year
  Sex: Female

DRUGS (7)
  1. SANDOSTATIN LAR DEPOT [Suspect]
     Active Substance: OCTREOTIDE ACETATE
     Indication: NEUROENDOCRINE CARCINOMA
  2. AFINITOR [Suspect]
     Active Substance: EVEROLIMUS
     Indication: NEUROENDOCRINE CARCINOMA
     Route: 065
     Dates: start: 201505, end: 20150908
  3. CARAFATE [Concomitant]
     Active Substance: SUCRALFATE
     Indication: GASTROOESOPHAGEAL REFLUX DISEASE
     Route: 065
  4. NEXIUM [Concomitant]
     Active Substance: ESOMEPRAZOLE MAGNESIUM
     Indication: GASTROOESOPHAGEAL REFLUX DISEASE
     Dosage: UNK
     Route: 065
  5. SANDOSTATIN LAR DEPOT [Suspect]
     Active Substance: OCTREOTIDE ACETATE
     Indication: PANCREATIC NEUROENDOCRINE TUMOUR
     Dosage: 20 MG, QMO
     Route: 065
     Dates: start: 20140815, end: 20150908
  6. AFINITOR [Suspect]
     Active Substance: EVEROLIMUS
     Indication: PANCREATIC NEUROENDOCRINE TUMOUR
  7. ESTROGEL [Concomitant]
     Active Substance: ESTRADIOL
     Indication: POSTMENOPAUSE
     Route: 065

REACTIONS (19)
  - Hyperhomocysteinaemia [Unknown]
  - Drug intolerance [Unknown]
  - Abdominal distension [Unknown]
  - Pulmonary hypertension [Unknown]
  - Contusion [Unknown]
  - Abdominal pain [Unknown]
  - Weight decreased [Unknown]
  - Aortic valve incompetence [Unknown]
  - Metastases to lymph nodes [Unknown]
  - Depression [Unknown]
  - Flatulence [Unknown]
  - Oedema peripheral [Recovering/Resolving]
  - Cachexia [Unknown]
  - Malignant neoplasm progression [Unknown]
  - Hepatic lesion [Unknown]
  - Tenderness [Unknown]
  - Diarrhoea [Recovering/Resolving]
  - Hot flush [Unknown]
  - Drug ineffective [Unknown]

NARRATIVE: CASE EVENT DATE: 20150112
